FAERS Safety Report 13670442 (Version 2)
Quarter: 2017Q3

REPORT INFORMATION
  Report Type: Report from Study
  Country: US (occurrence: US)
  Receive Date: 20170620
  Receipt Date: 20170706
  Transmission Date: 20171127
  Serious: Yes (Hospitalization, Other)
  Sender: FDA-Public Use
  Company Number: US-BAYER-2017-112412

PATIENT
  Age: 52 Year
  Sex: Female
  Weight: 76.4 kg

DRUGS (1)
  1. REGORAFENIB [Suspect]
     Active Substance: REGORAFENIB
     Indication: LIPOSARCOMA METASTATIC
     Dosage: 160 MG, QD
     Route: 048
     Dates: start: 20170524, end: 20170606

REACTIONS (30)
  - Diarrhoea [None]
  - Blood bilirubin increased [Recovered/Resolved]
  - Hyperkeratosis [Recovering/Resolving]
  - Dizziness [Recovered/Resolved]
  - Pain of skin [Recovering/Resolving]
  - Hyponatraemia [Recovered/Resolved]
  - Platelet count decreased [Recovered/Resolved]
  - Hypocalcaemia [Not Recovered/Not Resolved]
  - Aspartate aminotransferase increased [Recovered/Resolved]
  - Vomiting [None]
  - Pain [Recovered/Resolved]
  - Palmar-plantar erythrodysaesthesia syndrome [None]
  - Liposarcoma metastatic [None]
  - Alanine aminotransferase increased [Recovered/Resolved]
  - Malaise [None]
  - Pyrexia [None]
  - Nausea [None]
  - Stomatitis [Recovered/Resolved]
  - Hypoalbuminaemia [None]
  - Hypokalaemia [None]
  - Feeding disorder [Recovered/Resolved]
  - Blister [Recovering/Resolving]
  - Hypophosphataemia [Not Recovered/Not Resolved]
  - Rash maculo-papular [Recovering/Resolving]
  - Influenza like illness [None]
  - Fluid intake reduced [Recovered/Resolved]
  - Dehydration [Recovered/Resolved]
  - Sinus tachycardia [None]
  - Hypomagnesaemia [None]
  - Pain [None]

NARRATIVE: CASE EVENT DATE: 20170607
